FAERS Safety Report 19288729 (Version 1)
Quarter: 2021Q2

REPORT INFORMATION
  Report Type: Spontaneous
  Country: FR (occurrence: FR)
  Receive Date: 20210522
  Receipt Date: 20210522
  Transmission Date: 20210717
  Serious: Yes (Hospitalization)
  Sender: FDA-Public Use
  Company Number: FR-ACCORD-225651

PATIENT
  Age: 61 Year
  Sex: Female
  Weight: 79 kg

DRUGS (3)
  1. XELODA [Suspect]
     Active Substance: CAPECITABINE
     Indication: RECTAL ADENOCARCINOMA
     Route: 048
     Dates: start: 20210219, end: 20210302
  2. AVASTIN [Suspect]
     Active Substance: BEVACIZUMAB
     Indication: RECTAL ADENOCARCINOMA
     Dosage: 25 MG / ML CONCENTRATE FOR SOLUTION FOR INFUSION
     Route: 042
     Dates: start: 20210218, end: 20210218
  3. OXALIPLATIN ACCORD [Suspect]
     Active Substance: OXALIPLATIN
     Indication: RECTAL ADENOCARCINOMA
     Dosage: 5 MG / ML CONCENTRATE FOR SOLUTION FOR INFUSION
     Route: 042
     Dates: start: 20210218, end: 20210218

REACTIONS (1)
  - Acute coronary syndrome [Recovered/Resolved]

NARRATIVE: CASE EVENT DATE: 20210302
